FAERS Safety Report 5587696-6 (Version None)
Quarter: 2007Q4

REPORT INFORMATION
  Report Type: 
  Country: None (occurrence: None)
  Receive Date: 20071206
  Receipt Date: 20071019
  Transmission Date: 20080405
  Serious: Yes (Other)
  Sender: FDA-Public Use
  Company Number: 42014

PATIENT
  Age: 64 Year
  Sex: Male

DRUGS (2)
  1. METHOTREXATE [Suspect]
     Indication: MANTLE CELL LYMPHOMA
     Dosage: 400MG/IV (2HR INFUSION) THEN 1
     Route: 042
     Dates: start: 20071015
  2. METHOTREXATE [Suspect]

REACTIONS (1)
  - OVERDOSE [None]
